FAERS Safety Report 18242082 (Version 1)
Quarter: 2020Q3

REPORT INFORMATION
  Report Type: Other
  Country: IN (occurrence: IN)
  Receive Date: 20200908
  Receipt Date: 20200908
  Transmission Date: 20201103
  Serious: Yes (Other)
  Sender: FDA-Public Use
  Company Number: IN-DEXPHARM-20200799

PATIENT
  Age: 60 Year
  Sex: Male

DRUGS (7)
  1. CEFTRIAXONE. [Concomitant]
     Active Substance: CEFTRIAXONE
     Indication: INFECTION
  2. PREGABALIN. [Concomitant]
     Active Substance: PREGABALIN
     Indication: RADICULOPATHY
  3. TRAMADOL. [Concomitant]
     Active Substance: TRAMADOL
     Indication: PAIN
  4. PARACETAMOL [Concomitant]
     Active Substance: ACETAMINOPHEN
     Indication: PAIN
  5. DICLOFENAC INJECTION [Suspect]
     Active Substance: DICLOFENAC
     Indication: PAIN
  6. METHYLCOBALAMINE [Concomitant]
     Active Substance: METHYLCOBALAMIN
     Indication: RADICULOPATHY
  7. SULBACTAM [Concomitant]
     Active Substance: SULBACTAM
     Indication: INFECTION

REACTIONS (1)
  - Embolia cutis medicamentosa [Unknown]
